FAERS Safety Report 16205844 (Version 1)
Quarter: 2019Q2

REPORT INFORMATION
  Report Type: Spontaneous
  Country: US (occurrence: US)
  Receive Date: 20190417
  Receipt Date: 20190417
  Transmission Date: 20190711
  Serious: Yes (Hospitalization)
  Sender: FDA-Public Use
  Company Number: US-TEVA-2019-US-1038574

PATIENT
  Age: 15 Year
  Sex: Male

DRUGS (7)
  1. EPINEPHRINE. [Suspect]
     Active Substance: EPINEPHRINE
     Indication: ASTHMA
     Route: 065
  2. DUONEBS [Concomitant]
     Indication: ASTHMA
     Route: 065
  3. SOLU-MEDROL [Concomitant]
     Active Substance: METHYLPREDNISOLONE SODIUM SUCCINATE
     Indication: ASTHMA
     Route: 065
  4. ALBUTEROL. [Concomitant]
     Active Substance: ALBUTEROL
     Indication: ASTHMA
     Dosage: CONTINEOUS
     Route: 065
  5. MAGNESIUM [Concomitant]
     Active Substance: MAGNESIUM
     Route: 050
  6. TERBUTALINE [Concomitant]
     Active Substance: TERBUTALINE
     Route: 065
  7. KETAMINE [Suspect]
     Active Substance: KETAMINE
     Indication: ASTHMA
     Dosage: CONTINUOUS ADMINISTRATION
     Route: 065

REACTIONS (5)
  - Myocardial ischaemia [Recovering/Resolving]
  - Systolic hypertension [Recovering/Resolving]
  - Diastolic hypertension [Recovering/Resolving]
  - Electrocardiogram ST segment depression [Recovering/Resolving]
  - Haemodynamic instability [Recovering/Resolving]
